FAERS Safety Report 4483725-1 (Version None)
Quarter: 2004Q4

REPORT INFORMATION
  Report Type: 
  Country: None (occurrence: None)
  Receive Date: 20041021
  Receipt Date: 20041006
  Transmission Date: 20050328
  Serious: Yes (Hospitalization)
  Sender: FDA-Public Use
  Company Number: 2004234390US

PATIENT
  Age: 67 Year
  Sex: Female
  Weight: 56 kg

DRUGS (9)
  1. CAMPTOSAR [Suspect]
     Indication: SMALL CELL LUNG CANCER LIMITED STAGE
     Dosage: 99 MG, D1 D8, CYCLIC, IV
     Route: 042
     Dates: end: 20040910
  2. CISPLATIN [Suspect]
     Indication: SMALL CELL LUNG CANCER LIMITED STAGE
     Dosage: 103 MG, D1 CYCLIC, IV
     Route: 042
     Dates: start: 20040901
  3. CLINICAL TRIAL PROCEDURE (CLINICAL TRAIL PROCEDURE) [Suspect]
     Indication: SMALL CELL LUNG CANCER LIMITED STAGE
     Dosage: RADIOTHERAPY, BID, CYLE 1,
  4. LEXAPRO [Concomitant]
  5. PEPCID [Concomitant]
  6. CENTRUM SILVER (VITAMIN B NOS, VITAMINS NOS, RETINOL) [Concomitant]
  7. PREVACID [Concomitant]
  8. FIBERMED   (FIBRE , DIETARY) [Concomitant]
  9. COLACE  (DOCUSATE SODIUM) [Concomitant]

REACTIONS (3)
  - DEHYDRATION [None]
  - NEUTROPENIA [None]
  - ORTHOSTATIC HYPOTENSION [None]
